FAERS Safety Report 15994065 (Version 3)
Quarter: 2019Q1

REPORT INFORMATION
  Report Type: Report from Study
  Country: JP (occurrence: JP)
  Receive Date: 20190222
  Receipt Date: 20190301
  Transmission Date: 20190418
  Serious: Yes (Hospitalization)
  Sender: FDA-Public Use
  Company Number: JP-ROCHE-2268901

PATIENT
  Age: 60 Year
  Sex: Male
  Weight: 81.5 kg

DRUGS (13)
  1. MERISLON [Concomitant]
     Active Substance: BETAHISTINE MESILATE
     Indication: DEPRESSION
  2. DEPAS (JAPAN) [Concomitant]
     Indication: DEPRESSION
     Route: 065
  3. FUROSEMIDE. [Concomitant]
     Active Substance: FUROSEMIDE
     Indication: OEDEMA
     Route: 065
     Dates: start: 20171114
  4. ATEZOLIZUMAB. [Suspect]
     Active Substance: ATEZOLIZUMAB
     Indication: NON-SMALL CELL LUNG CANCER STAGE IV
     Dosage: ON 15/AUG/2018, RECEIVED MOST RECENT DOSE?RECEIVED IV INFUSION OF 1200 MG ATEZOLIZUMAB ON DAY 1 Q3W
     Route: 042
     Dates: start: 20161115
  5. SOLANAX [Concomitant]
     Active Substance: ALPRAZOLAM
     Indication: DEPRESSION
     Route: 065
  6. DOGMATYL [Concomitant]
     Active Substance: SULPIRIDE
     Indication: DEPRESSION
     Route: 065
  7. CARBOPLATIN. [Suspect]
     Active Substance: CARBOPLATIN
     Indication: NON-SMALL CELL LUNG CANCER STAGE IV
     Dosage: ON 28/MAR/2017, RECEIVED MOST RECENT DOSE OF CARBOPLATIN?WILL RECEIVE IV INFUSION OF CARBOPLATIN ON
     Route: 042
     Dates: start: 20161115
  8. LENDORMIN [Concomitant]
     Active Substance: BROTIZOLAM
     Indication: INSOMNIA
     Route: 065
  9. DAIPHEN [Concomitant]
     Active Substance: SULFAMETHOXAZOLE\TRIMETHOPRIM
     Route: 065
     Dates: start: 20181019
  10. PEMETREXED. [Suspect]
     Active Substance: PEMETREXED
     Indication: NON-SMALL CELL LUNG CANCER STAGE IV
     Dosage: ON 15/AUG/2018, RECEIVED MOST RECENT DOSE?RECEIVED 920 MG LAST DOSE?WILL RECEIVE IV INFUSION OF 500
     Route: 042
     Dates: start: 20161115
  11. TRAZODONE [Concomitant]
     Active Substance: TRAZODONE HYDROCHLORIDE
     Indication: DEPRESSION
     Route: 065
  12. HIRNAMIN [Concomitant]
     Active Substance: LEVOMEPROMAZINE
     Indication: DEPRESSION
  13. ESOMEPRAZOLE MAGNESIUM. [Concomitant]
     Active Substance: ESOMEPRAZOLE MAGNESIUM
     Indication: GASTRITIS PROPHYLAXIS
     Route: 065
     Dates: start: 20181012

REACTIONS (1)
  - Bronchitis [Recovered/Resolved]

NARRATIVE: CASE EVENT DATE: 20190214
